FAERS Safety Report 7731623-X (Version None)
Quarter: 2011Q3

REPORT INFORMATION
  Report Type: 
  Country: None (occurrence: None)
  Receive Date: 20110906
  Receipt Date: 20110621
  Transmission Date: 20111222
  Serious: No
  Sender: FDA-Public Use
  Company Number: US-AMGEN-USASP2011031691

PATIENT
  Sex: Male

DRUGS (3)
  1. METOPROLOL TARTRATE [Concomitant]
  2. XGEVA [Suspect]
     Indication: METASTASES TO BONE
  3. PERCOCET [Concomitant]

REACTIONS (1)
  - TOOTHACHE [None]
